FAERS Safety Report 25926447 (Version 1)
Quarter: 2025Q4

REPORT INFORMATION
  Report Type: Report from Study
  Country: EG (occurrence: EG)
  Receive Date: 20251015
  Receipt Date: 20251015
  Transmission Date: 20260117
  Serious: Yes (Other)
  Sender: NOVARTIS
  Company Number: EG-002147023-NVSC2022EG100712

PATIENT
  Sex: Female

DRUGS (7)
  1. GILENYA [Suspect]
     Active Substance: FINGOLIMOD HYDROCHLORIDE
     Indication: Multiple sclerosis
     Dosage: 0.5 MG, QD
     Route: 048
     Dates: start: 2019, end: 2020
  2. GILENYA [Suspect]
     Active Substance: FINGOLIMOD HYDROCHLORIDE
     Dosage: 1 DOSAGE FORM, OTHER (EACH OTHER DAY FOR A WEEK)
     Route: 048
  3. GILENYA [Suspect]
     Active Substance: FINGOLIMOD HYDROCHLORIDE
     Dosage: 0.5 MG, QD
     Route: 048
     Dates: start: 2020, end: 202111
  4. Bio island cod liver + fish oil [Concomitant]
     Indication: Supplementation therapy
     Dosage: QD (ONCE DAILY)
     Route: 065
     Dates: start: 2021
  5. Solupred [Concomitant]
     Indication: Multiple sclerosis
     Dosage: UNK, BID
     Route: 065
     Dates: start: 20230315
  6. Ezogast [Concomitant]
     Indication: Abdominal pain upper
     Dosage: 1 DOSAGE FORM (CAP), QD (IN THE MORNING BEFORE BREADFAST)
     Route: 065
     Dates: start: 20230315
  7. Livabion [Concomitant]
     Indication: Supplementation therapy
     Dosage: 1 DOSAGE FORM (AMPOULE), QW
     Route: 065
     Dates: start: 20230315

REACTIONS (17)
  - Multiple sclerosis relapse [Recovered/Resolved]
  - Headache [Recovered/Resolved]
  - Fatigue [Recovered/Resolved]
  - Limb discomfort [Recovered/Resolved]
  - Multiple sclerosis relapse [Recovered/Resolved]
  - Headache [Not Recovered/Not Resolved]
  - Fatigue [Not Recovered/Not Resolved]
  - Limb discomfort [Not Recovered/Not Resolved]
  - Dizziness [Not Recovered/Not Resolved]
  - White blood cell count decreased [Unknown]
  - Multiple sclerosis relapse [Not Recovered/Not Resolved]
  - Limb discomfort [Not Recovered/Not Resolved]
  - Mastication disorder [Recovered/Resolved]
  - Speech disorder [Recovered/Resolved]
  - Hallucination [Recovered/Resolved]
  - Vision blurred [Not Recovered/Not Resolved]
  - Off label use [Unknown]

NARRATIVE: CASE EVENT DATE: 20190101
